FAERS Safety Report 9582008 (Version 1)
Quarter: 2013Q4

REPORT INFORMATION
  Report Type: Spontaneous
  Country: US (occurrence: US)
  Receive Date: 20131002
  Receipt Date: 20131002
  Transmission Date: 20140711
  Serious: Yes (Hospitalization)
  Sender: FDA-Public Use
  Company Number: US-UCBSA-098799

PATIENT
  Sex: 0

DRUGS (5)
  1. CIMZIA [Suspect]
     Indication: CROHN^S DISEASE
     Dosage: UNKNOWN
  2. REMICADE [Concomitant]
     Dosage: UNKNOWN
  3. MP6 [Concomitant]
     Dosage: UNKNOWN
  4. IMURAN [Concomitant]
     Dosage: UNKNOWN
  5. HUMIRA [Concomitant]
     Dosage: UNKNOWN

REACTIONS (4)
  - Crohn^s disease [Unknown]
  - Coeliac disease [Unknown]
  - Accident [Unknown]
  - Drug ineffective [Unknown]
